FAERS Safety Report 4558388-7 (Version None)
Quarter: 2005Q1

REPORT INFORMATION
  Report Type: 
  Country: None (occurrence: None)
  Receive Date: 20050103
  Receipt Date: 20041004
  Transmission Date: 20050727
  Serious: Yes (Other)
  Sender: FDA-Public Use
  Company Number: 2004UW20840

PATIENT
  Sex: Female

DRUGS (4)
  1. CRESTOR [Suspect]
     Dosage: 10 MG PO
     Route: 048
     Dates: start: 20040101
  2. PLAVIX [Concomitant]
  3. NITRO PATCH [Concomitant]
  4. PEPCID [Concomitant]

REACTIONS (1)
  - HOT FLUSH [None]
